FAERS Safety Report 6747723-7 (Version None)
Quarter: 2010Q2

REPORT INFORMATION
  Report Type: 
  Country: None (occurrence: None)
  Receive Date: 20100528
  Receipt Date: 20100524
  Transmission Date: 20101027
  Serious: Yes (Hospitalization)
  Sender: FDA-Public Use
  Company Number: US-ELI_LILLY_AND_COMPANY-US201005006373

PATIENT
  Sex: Female

DRUGS (4)
  1. HUMULIN 70/30 [Suspect]
     Indication: DIABETES MELLITUS
     Dosage: 84 U, 2/D
     Dates: start: 20050101
  2. HUMULIN 70/30 [Suspect]
     Dosage: 84 U, 2/D
     Dates: start: 20100401
  3. SYNTHROID [Concomitant]
     Dosage: 100 UG, UNK
  4. NOVOLIN [Concomitant]

REACTIONS (3)
  - BLOOD GLUCOSE INCREASED [None]
  - CORONARY ARTERIAL STENT INSERTION [None]
  - NEUROPATHY PERIPHERAL [None]
